FAERS Safety Report 23999191 (Version 1)
Quarter: 2024Q2

REPORT INFORMATION
  Report Type: Spontaneous
  Country: US (occurrence: US)
  Receive Date: 20240621
  Receipt Date: 20240621
  Transmission Date: 20240715
  Serious: Yes (Other)
  Sender: FDA-Public Use
  Company Number: US-BAYER-2024A088278

PATIENT
  Age: 68 Year
  Sex: Female

DRUGS (6)
  1. CIPROFLOXACIN [Suspect]
     Active Substance: CIPROFLOXACIN
     Indication: Product used for unknown indication
  2. LORAZEPAM [Concomitant]
     Active Substance: LORAZEPAM
  3. GABAPENTIN [Concomitant]
     Active Substance: GABAPENTIN
  4. AMITRIPTYLINE HYDROCHLORIDE [Concomitant]
     Active Substance: AMITRIPTYLINE HYDROCHLORIDE
  5. DALFAMPRIDINE [Concomitant]
     Active Substance: DALFAMPRIDINE
  6. SOLIFENACIN [Concomitant]
     Active Substance: SOLIFENACIN

REACTIONS (1)
  - Seizure [None]
